FAERS Safety Report 12655114 (Version 1)
Quarter: 2016Q3

REPORT INFORMATION
  Report Type: Spontaneous
  Country: US (occurrence: None)
  Receive Date: 20160815
  Receipt Date: 20160815
  Transmission Date: 20161109
  Serious: Yes (Hospitalization)
  Sender: FDA-Public Use
  Company Number: None

PATIENT
  Age: 49 Year
  Sex: Male

DRUGS (1)
  1. COPAXONE [Suspect]
     Active Substance: GLATIRAMER ACETATE
     Indication: MULTIPLE SCLEROSIS
     Route: 058
     Dates: start: 20151012, end: 20160811

REACTIONS (6)
  - Heart rate increased [None]
  - Eye pain [None]
  - Hyperhidrosis [None]
  - Vomiting [None]
  - Headache [None]
  - Injection site erythema [None]

NARRATIVE: CASE EVENT DATE: 20160811
